FAERS Safety Report 8450620-2 (Version None)
Quarter: 2012Q2

REPORT INFORMATION
  Report Type: 
  Country: None (occurrence: None)
  Receive Date: 20120620
  Receipt Date: 20120605
  Transmission Date: 20120825
  Serious: Yes (Other)
  Sender: FDA-Public Use
  Company Number: US-ABBOTT-12P-163-0943644-00

PATIENT
  Sex: Female
  Weight: 59.474 kg

DRUGS (5)
  1. CELEXA [Concomitant]
     Indication: PRODUCT USED FOR UNKNOWN INDICATION
  2. HUMIRA [Suspect]
     Indication: CROHN'S DISEASE
     Route: 058
     Dates: start: 20120201, end: 20120424
  3. IMURAN [Concomitant]
     Indication: PRODUCT USED FOR UNKNOWN INDICATION
     Dates: start: 20100101, end: 20120424
  4. ALLEGRA [Concomitant]
     Indication: SEASONAL ALLERGY
  5. PREDNISONE [Concomitant]
     Indication: PRODUCT USED FOR UNKNOWN INDICATION
     Dosage: TAPERING
     Dates: start: 20120201

REACTIONS (3)
  - LYMPH NODE PAIN [None]
  - LYMPHADENOPATHY [None]
  - LYMPHOMA [None]
